FAERS Safety Report 8845478 (Version 2)
Quarter: 2013Q2

REPORT INFORMATION
  Report Type: Spontaneous
  Country: US (occurrence: US)
  Receive Date: 20121017
  Receipt Date: 20130611
  Transmission Date: 20140414
  Serious: No
  Sender: FDA-Public Use
  Company Number: US-ASTRAZENECA-2012SE72858

PATIENT
  Age: 59 Year
  Sex: Female

DRUGS (1)
  1. ZESTRIL [Suspect]
     Route: 048

REACTIONS (4)
  - Chest pain [Unknown]
  - Adverse drug reaction [Unknown]
  - Paraesthesia [Unknown]
  - Drug effect decreased [Unknown]
